FAERS Safety Report 11997476 (Version 1)
Quarter: 2016Q1

REPORT INFORMATION
  Report Type: Spontaneous
  Country: US (occurrence: US)
  Receive Date: 20160203
  Receipt Date: 20160203
  Transmission Date: 20160526
  Serious: Yes (Other)
  Sender: FDA-Public Use
  Company Number: US-AMGEN-USASP2016011283

PATIENT
  Age: 57 Year
  Sex: Female

DRUGS (14)
  1. VITAMIN D3 [Concomitant]
     Active Substance: CHOLECALCIFEROL
  2. VITAMIN B6 [Concomitant]
     Active Substance: PYRIDOXINE HYDROCHLORIDE
  3. IRON [Concomitant]
     Active Substance: IRON
     Dosage: UNK UNK, QMO
  4. TIZANIDINE HCL [Concomitant]
     Active Substance: TIZANIDINE HYDROCHLORIDE
  5. LEXAPRO [Concomitant]
     Active Substance: ESCITALOPRAM OXALATE
  6. GABAPENTINE [Concomitant]
     Active Substance: GABAPENTIN
  7. VITAMIN B12 [Concomitant]
     Active Substance: CYANOCOBALAMIN
  8. OXYCODONE [Concomitant]
     Active Substance: OXYCODONE
  9. ELIQUIS [Concomitant]
     Active Substance: APIXABAN
  10. METOPROLOL SUCCINATE. [Concomitant]
     Active Substance: METOPROLOL SUCCINATE
  11. OMEPRAZOLE. [Concomitant]
     Active Substance: OMEPRAZOLE
  12. ENBREL [Suspect]
     Active Substance: ETANERCEPT
     Indication: RHEUMATOID ARTHRITIS
     Dosage: 50 MG, QWK
     Route: 058
     Dates: start: 201504, end: 201601
  13. MAGNESIUM [Concomitant]
     Active Substance: MAGNESIUM
  14. CALCIUM [Concomitant]
     Active Substance: CALCIUM

REACTIONS (3)
  - Injection site bruising [Recovering/Resolving]
  - Atrial fibrillation [Unknown]
  - Injection site erythema [Recovering/Resolving]

NARRATIVE: CASE EVENT DATE: 201507
